FAERS Safety Report 8322897-5 (Version None)
Quarter: 2012Q2

REPORT INFORMATION
  Report Type: 
  Country: None (occurrence: None)
  Receive Date: 20120426
  Receipt Date: 20120307
  Transmission Date: 20120825
  Serious: Yes (Hospitalization, Other)
  Sender: FDA-Public Use
  Company Number: HA12-063-AE

PATIENT
  Age: 78 Year
  Sex: Female
  Weight: 70.3075 kg

DRUGS (4)
  1. TRIMETHOPRIM-SULFAMETHOXAZOLE [Suspect]
     Indication: URINARY TRACT INFECTION
     Dosage: 1 TABLET, BID, ORAL
     Route: 048
     Dates: start: 20110923, end: 20110924
  2. RANOLAZINE [Concomitant]
  3. PRAVASTATIN [Concomitant]
  4. LOSARTAN POTASSIUM [Concomitant]

REACTIONS (23)
  - ALOPECIA [None]
  - SWOLLEN TONGUE [None]
  - EYE HAEMORRHAGE [None]
  - STEVENS-JOHNSON SYNDROME [None]
  - BLOOD GLUCOSE ABNORMAL [None]
  - HAEMOGLOBIN DECREASED [None]
  - PHARYNGEAL OEDEMA [None]
  - SWELLING FACE [None]
  - PRURITUS [None]
  - DYSPHAGIA [None]
  - DEPRESSION [None]
  - OBSTRUCTIVE AIRWAYS DISORDER [None]
  - LIP SWELLING [None]
  - BLOOD GLUCOSE INCREASED [None]
  - OCULAR HYPERAEMIA [None]
  - TONGUE BLISTERING [None]
  - HYPOKALAEMIA [None]
  - HYPERLIPIDAEMIA [None]
  - OEDEMA MOUTH [None]
  - FATIGUE [None]
  - ARTERIOSCLEROSIS CORONARY ARTERY [None]
  - HYPERTENSION [None]
  - OSTEOPOROSIS [None]
